FAERS Safety Report 17633587 (Version 1)
Quarter: 2020Q2

REPORT INFORMATION
  Report Type: Spontaneous
  Country: CA (occurrence: CA)
  Receive Date: 20200406
  Receipt Date: 20200406
  Transmission Date: 20200713
  Serious: Yes (Hospitalization)
  Sender: FDA-Public Use
  Company Number: CA-SAMSUNG BIOEPIS-SB-2020-11104

PATIENT
  Age: 46 Year
  Sex: Female
  Weight: 49 kg

DRUGS (3)
  1. SINGULAIR [Concomitant]
     Active Substance: MONTELUKAST SODIUM
     Indication: PRODUCT USED FOR UNKNOWN INDICATION
     Dosage: UNKNOWN
     Route: 065
  2. INFLIXIMAB [Suspect]
     Active Substance: INFLIXIMAB
     Indication: CROHN^S DISEASE
     Route: 042
  3. PREDNISONE. [Concomitant]
     Active Substance: PREDNISONE
     Indication: PRODUCT USED FOR UNKNOWN INDICATION
     Dosage: UNKNOWN
     Route: 048

REACTIONS (18)
  - Weight increased [Unknown]
  - Drug-induced liver injury [Unknown]
  - Hypersomnia [Unknown]
  - Malaise [Unknown]
  - Rash [Unknown]
  - Dizziness [Unknown]
  - Intervertebral disc protrusion [Unknown]
  - Nausea [Unknown]
  - Product use issue [Unknown]
  - Dry skin [Unknown]
  - Eczema [Unknown]
  - Ocular icterus [Unknown]
  - Skin exfoliation [Unknown]
  - Dry eye [Unknown]
  - Impaired work ability [Unknown]
  - Pruritus [Unknown]
  - Off label use [Unknown]
  - Burning sensation [Unknown]
